FAERS Safety Report 25607441 (Version 1)
Quarter: 2025Q3

REPORT INFORMATION
  Report Type: Report from Study
  Country: US (occurrence: US)
  Receive Date: 20250725
  Receipt Date: 20250725
  Transmission Date: 20251021
  Serious: Yes (Other)
  Sender: TEVA
  Company Number: US-TEVA-VS-3354639

PATIENT
  Age: 56 Year

DRUGS (5)
  1. AUSTEDO XR [Suspect]
     Active Substance: DEUTETRABENAZINE
     Indication: Tardive dyskinesia
     Dosage: ONCE IN THE MORNING
     Route: 065
     Dates: start: 20240806, end: 20250620
  2. PALIPERIDONE [Concomitant]
     Active Substance: PALIPERIDONE
     Indication: Product used for unknown indication
     Route: 065
     Dates: start: 20240808
  3. TRAZODONE [Concomitant]
     Active Substance: TRAZODONE HYDROCHLORIDE
     Indication: Product used for unknown indication
     Route: 065
     Dates: start: 20240923
  4. HYDROXYZINE [Concomitant]
     Active Substance: HYDROXYZINE HYDROCHLORIDE
     Indication: Product used for unknown indication
     Route: 065
     Dates: start: 20240119
  5. METFORMIN [Concomitant]
     Active Substance: METFORMIN HYDROCHLORIDE
     Indication: Diabetes mellitus
     Route: 065
     Dates: start: 20250517

REACTIONS (7)
  - Balance disorder [Unknown]
  - Dizziness [Unknown]
  - Fall [Unknown]
  - Insomnia [Unknown]
  - Dry mouth [Unknown]
  - Diarrhoea [Unknown]
  - Fatigue [Unknown]
